FAERS Safety Report 5939747-4 (Version None)
Quarter: 2008Q4

REPORT INFORMATION
  Report Type: 
  Country: None (occurrence: None)
  Receive Date: 20081031
  Receipt Date: 20081031
  Transmission Date: 20090506
  Serious: Yes (Other)
  Sender: FDA-Public Use
  Company Number: None

PATIENT
  Age: 26 Year
  Sex: Female
  Weight: 100.6985 kg

DRUGS (2)
  1. AZITHROMYCIN [Suspect]
     Indication: SINUSITIS
     Dosage: 500MG ONCE PO
     Route: 048
     Dates: start: 20081029, end: 20081102
  2. AZITHROMYCIN [Suspect]
     Dosage: 250MG 4 DAYS PO
     Route: 048

REACTIONS (1)
  - ABDOMINAL PAIN UPPER [None]
